FAERS Safety Report 8786120 (Version 1)
Quarter: 2012Q4

REPORT INFORMATION
  Report Type: Report from Study
  Country: US (occurrence: US)
  Receive Date: 20120914
  Receipt Date: 20120914
  Transmission Date: 20130627
  Serious: No
  Sender: FDA-Public Use
  Company Number: US-VERTEX PHARMACEUTICAL INC.-AE-2012-011560

PATIENT
  Age: 60 Year
  Sex: Male
  Weight: 84.91 kg

DRUGS (5)
  1. INCIVEK [Suspect]
     Indication: HEPATITIS C
     Route: 048
     Dates: start: 20110801
  2. PEGASYS [Concomitant]
     Indication: HEPATITIS C
     Dates: start: 20110801
  3. COPEGUS [Concomitant]
     Indication: HEPATITIS C
     Dates: start: 20110801
  4. COPEGUS [Concomitant]
  5. LISINOPRIL [Concomitant]

REACTIONS (5)
  - Off label use [Unknown]
  - Rash [Unknown]
  - Blister [Unknown]
  - Anaemia [Unknown]
  - Pruritus [Unknown]
